FAERS Safety Report 5126180-0 (Version None)
Quarter: 2006Q3

REPORT INFORMATION
  Report Type: 
  Country: None (occurrence: None)
  Receive Date: 20060823
  Receipt Date: 20050803
  Transmission Date: 20061208
  Serious: Yes (Disabling, Other)
  Sender: FDA-Public Use
  Company Number: WAES 0508USA01042

PATIENT
  Age: 87 Year
  Sex: Male
  Weight: 78.9259 kg

DRUGS (6)
  1. PROSCAR [Suspect]
     Indication: BENIGN PROSTATIC HYPERPLASIA
     Dosage: 5 MG/DAILY/PO
     Route: 048
     Dates: start: 20030303
  2. CARTIA (DILTIAZEM HYDROCHLORIDE) [Concomitant]
  3. COUMADIN [Concomitant]
  4. FLOMAX [Concomitant]
  5. LASIX [Concomitant]
  6. ALBUTEROL [Concomitant]

REACTIONS (1)
  - GYNAECOMASTIA [None]
